FAERS Safety Report 23399797 (Version 1)
Quarter: 2024Q1

REPORT INFORMATION
  Report Type: Spontaneous
  Country: AU (occurrence: AU)
  Receive Date: 20240114
  Receipt Date: 20240114
  Transmission Date: 20240410
  Serious: Yes (Hospitalization)
  Sender: FDA-Public Use
  Company Number: AU-AMGEN-AUSSP2024006943

PATIENT
  Sex: Female

DRUGS (19)
  1. BEVACIZUMAB [Suspect]
     Active Substance: BEVACIZUMAB
     Indication: Colorectal cancer metastatic
     Dosage: UNK
     Route: 042
     Dates: start: 20230111
  2. CAPECITABINE [Suspect]
     Active Substance: CAPECITABINE
     Indication: Product used for unknown indication
     Route: 065
  3. LEUCOVORIN [Suspect]
     Active Substance: LEUCOVORIN\LEUCOVORIN CALCIUM
     Indication: Product used for unknown indication
     Dosage: UNK
     Route: 065
     Dates: start: 20200602
  4. OXALIPLATIN [Suspect]
     Active Substance: OXALIPLATIN
     Indication: Product used for unknown indication
     Route: 065
  5. DEXAMETHASONE [Concomitant]
     Active Substance: DEXAMETHASONE
  6. METOCLOPRAMIDE [Concomitant]
     Active Substance: METOCLOPRAMIDE
  7. LOPERAMIDE [Concomitant]
     Active Substance: LOPERAMIDE
  8. AKYNZEO [Concomitant]
  9. PALONOSETRON [Concomitant]
     Active Substance: PALONOSETRON
  10. ACETAMINOPHEN [Concomitant]
     Active Substance: ACETAMINOPHEN
  11. PHENERGAN [Concomitant]
     Active Substance: PROMETHAZINE HYDROCHLORIDE
  12. ATROPINE SULFATE [Concomitant]
     Active Substance: ATROPINE SULFATE
  13. Coloxyl [Concomitant]
  14. SENNA [Concomitant]
     Active Substance: SENNA LEAF\SENNOSIDES\SENNOSIDES A AND B
  15. MAGROLIMAB [Concomitant]
     Active Substance: MAGROLIMAB
     Indication: Colorectal cancer metastatic
     Dosage: UNK
     Route: 042
     Dates: start: 20230111
  16. IRINOTECAN [Concomitant]
     Active Substance: IRINOTECAN
     Indication: Colorectal cancer metastatic
     Dosage: UNK
     Route: 042
     Dates: start: 20230111
  17. FLUOROURACIL [Concomitant]
     Active Substance: FLUOROURACIL
     Indication: Colorectal cancer metastatic
     Dosage: UNK
  18. LEVOLEUCOVORIN [Concomitant]
     Active Substance: LEVOLEUCOVORIN
     Indication: Colorectal cancer metastatic
     Dosage: UNK
     Route: 042
     Dates: start: 20230111
  19. PANTOPRAZOLE [Concomitant]
     Active Substance: PANTOPRAZOLE

REACTIONS (1)
  - Enteritis [Recovered/Resolved]

NARRATIVE: CASE EVENT DATE: 20230318
